FAERS Safety Report 20183778 (Version 1)
Quarter: 2021Q4

REPORT INFORMATION
  Report Type: Spontaneous
  Country: CO (occurrence: CO)
  Receive Date: 20211214
  Receipt Date: 20211214
  Transmission Date: 20220303
  Serious: No
  Sender: FDA-Public Use
  Company Number: CO-PFIZER INC-202100923219

PATIENT
  Sex: Female

DRUGS (1)
  1. GENOTROPIN [Suspect]
     Active Substance: SOMATROPIN
     Dosage: 1 MG, UNK
     Route: 058

REACTIONS (3)
  - Drug dose omission by device [Unknown]
  - Wrong technique in device usage process [Unknown]
  - Device information output issue [Unknown]

NARRATIVE: CASE EVENT DATE: 20210718
